FAERS Safety Report 4618511-2 (Version None)
Quarter: 2005Q1

REPORT INFORMATION
  Report Type: 
  Country: None (occurrence: None)
  Receive Date: 20050323
  Receipt Date: 20050314
  Transmission Date: 20050727
  Serious: Yes (Hospitalization)
  Sender: FDA-Public Use
  Company Number: 2005PK00083

PATIENT
  Age: 73 Year
  Sex: Female
  Weight: 62 kg

DRUGS (3)
  1. ATACAND HCT [Suspect]
     Indication: HYPERTENSION
     Dates: start: 20010101
  2. THYROXIN [Concomitant]
  3. NO MATCH [Concomitant]

REACTIONS (2)
  - PANCREATITIS NECROTISING [None]
  - SURGERY [None]
